FAERS Safety Report 7795740-0 (Version None)
Quarter: 2011Q4

REPORT INFORMATION
  Report Type: 
  Country: None (occurrence: None)
  Receive Date: 20111004
  Receipt Date: 20110923
  Transmission Date: 20120403
  Serious: Yes (Hospitalization)
  Sender: FDA-Public Use
  Company Number: US-BAYER-2011-027914

PATIENT
  Age: 25 Year
  Sex: Female

DRUGS (1)
  1. YAZ [Suspect]
     Indication: CONTRACEPTION
     Dosage: UNK
     Dates: start: 20070901, end: 20081201

REACTIONS (7)
  - INJURY [None]
  - ANHEDONIA [None]
  - ANXIETY [None]
  - CHOLECYSTECTOMY [None]
  - EMOTIONAL DISTRESS [None]
  - PAIN [None]
  - GENERAL PHYSICAL HEALTH DETERIORATION [None]
